FAERS Safety Report 4787655-7 (Version None)
Quarter: 2005Q3

REPORT INFORMATION
  Report Type: 
  Country: None (occurrence: None)
  Receive Date: 20050926
  Receipt Date: 20050817
  Transmission Date: 20060218
  Serious: No
  Sender: FDA-Public Use
  Company Number: 216981

PATIENT
  Age: 52 Year
  Sex: Female

DRUGS (3)
  1. AVASTIN [Suspect]
     Indication: BREAST CANCER
     Dosage: 15 MG/KG, Q3W
     Dates: start: 20050623
  2. ADRIAMYCIN PFS [Concomitant]
  3. CYTOXAN [Concomitant]

REACTIONS (1)
  - HEADACHE [None]
